FAERS Safety Report 20656706 (Version 1)
Quarter: 2022Q1

REPORT INFORMATION
  Report Type: Spontaneous
  Country: CN (occurrence: CN)
  Receive Date: 20220331
  Receipt Date: 20220331
  Transmission Date: 20220424
  Serious: Yes (Hospitalization)
  Sender: FDA-Public Use
  Company Number: CN-AstraZeneca-2022A124712

PATIENT

DRUGS (5)
  1. GOSERELIN [Suspect]
     Active Substance: GOSERELIN
     Indication: Chemotherapy
     Dosage: 3.5 MG DAILY
     Route: 058
     Dates: start: 20220217, end: 20220217
  2. ZOLADEX [Suspect]
     Active Substance: GOSERELIN ACETATE
     Indication: Chemotherapy
     Dosage: UNK
     Route: 065
  3. PIRARUBICIN HYDROCHLORIDE [Suspect]
     Active Substance: PIRARUBICIN HYDROCHLORIDE
     Indication: Chemotherapy
     Dosage: 80 MG, QD, DAILY
     Route: 041
     Dates: start: 20220217, end: 20220217
  4. CYCLOPHOSPHAMIDE [Suspect]
     Active Substance: CYCLOPHOSPHAMIDE
     Indication: Chemotherapy
     Dosage: 1 GRAM, QD, DAILY
     Route: 041
     Dates: start: 20220217, end: 20220217
  5. DEXTROSE [Concomitant]
     Active Substance: DEXTROSE
     Indication: Drug therapy
     Dosage: 100 MILLILITER, QD
     Route: 041
     Dates: start: 20220217, end: 20220217

REACTIONS (3)
  - Myelosuppression [Unknown]
  - Nausea [Recovering/Resolving]
  - Vomiting [Recovering/Resolving]

NARRATIVE: CASE EVENT DATE: 20220217
